FAERS Safety Report 23279442 (Version 1)
Quarter: 2023Q4

REPORT INFORMATION
  Report Type: Spontaneous
  Country: US (occurrence: None)
  Receive Date: 20231209
  Receipt Date: 20231209
  Transmission Date: 20240110
  Serious: Yes (Death)
  Sender: FDA-Public Use
  Company Number: US-ROCHE-3471795

PATIENT

DRUGS (2)
  1. CELLCEPT [Suspect]
     Active Substance: MYCOPHENOLATE MOFETIL
     Indication: Scleroderma
     Route: 065
     Dates: start: 2019, end: 20231129
  2. ACTEMRA [Suspect]
     Active Substance: TOCILIZUMAB
     Indication: Scleroderma
     Route: 065
     Dates: start: 2023, end: 20231129

REACTIONS (3)
  - Off label use [Unknown]
  - Off label use [Unknown]
  - Death [Fatal]

NARRATIVE: CASE EVENT DATE: 20230101
